FAERS Safety Report 19158043 (Version 1)
Quarter: 2021Q2

REPORT INFORMATION
  Report Type: Spontaneous
  Country: JP (occurrence: JP)
  Receive Date: 20210420
  Receipt Date: 20210420
  Transmission Date: 20210717
  Serious: Yes (Death, Other)
  Sender: FDA-Public Use
  Company Number: JP-CELGENEUS-JPN-20210105688

PATIENT
  Age: 50 Year
  Sex: Male

DRUGS (2)
  1. RITUXAN [Concomitant]
     Active Substance: RITUXIMAB
     Indication: B-CELL LYMPHOMA
     Dosage: UNKNOWN
     Route: 041
  2. REVLIMID [Suspect]
     Active Substance: LENALIDOMIDE
     Indication: B-CELL LYMPHOMA
     Dosage: UNKNOWN
     Route: 048

REACTIONS (3)
  - Dysphagia [Fatal]
  - Follicular lymphoma [Unknown]
  - Oesophageal mass [Not Recovered/Not Resolved]

NARRATIVE: CASE EVENT DATE: 20210101
